FAERS Safety Report 10517139 (Version 1)
Quarter: 2014Q4

REPORT INFORMATION
  Report Type: Spontaneous
  Country: None (occurrence: None)
  Receive Date: 20141003
  Receipt Date: 20141003
  Transmission Date: 20150528
  Serious: Yes (Hospitalization)
  Sender: FDA-Public Use
  Company Number: 1301159

PATIENT
  Age: 53 Year
  Sex: Female

DRUGS (4)
  1. VICTRELIS [Suspect]
     Active Substance: BOCEPREVIR
     Indication: HEPATITIS C
     Dosage: 4 TIMES IN 7-9 HOURS, (200 MG) , ORAL
     Route: 048
     Dates: start: 20130918
  2. PEGASYS [Suspect]
     Active Substance: PEGINTERFERON ALFA-2A
     Indication: HEPATITIS C
     Dosage: 180 MCG / 0.5 ML PREFILLED SYRINGE (180 MG, 1 IN 1 WK)
     Route: 058
     Dates: start: 20130823
  3. RIBASPHERE [Suspect]
     Active Substance: RIBAVIRIN
     Indication: HEPATITIS C
     Dosage: 400/ 600 DIVIDED DOSES, (200 MG, 2 IN 1 D)
     Dates: start: 20130823
  4. TRAMADOL [Concomitant]
     Active Substance: TRAMADOL

REACTIONS (11)
  - Depression [None]
  - Vomiting [None]
  - Alopecia [None]
  - Depressed mood [None]
  - Headache [None]
  - Drug dose omission [None]
  - Insomnia [None]
  - Hypersensitivity [None]
  - Nausea [None]
  - Decreased appetite [None]
  - Rash [None]
